FAERS Safety Report 8902227 (Version 1)
Quarter: 2012Q4

REPORT INFORMATION
  Report Type: 
  Country: FR (occurrence: FR)
  Receive Date: 20121112
  Receipt Date: 20121112
  Transmission Date: 20130627
  Serious: Yes (Other)
  Sender: FDA-Public Use
  Company Number: FR-UCBSA-8044420

PATIENT
  Age: 22 Year
  Sex: Female

DRUGS (6)
  1. CERTOLIZUMAB PEGOL [Suspect]
     Indication: CROHN^S DISEASE
     Dosage: BEFORE CONCEPTION - Nr of doses :12
     Route: 058
     Dates: start: 20070216, end: 20071128
  2. CERTOLIZUMAB PEGOL [Suspect]
     Indication: CROHN^S DISEASE
     Dosage: 1 INJECTION DURING FIRST TRIMESTER - Nr of doses :1
     Route: 058
     Dates: start: 20080515
  3. CERTOLIZUMAB PEGOL [Suspect]
     Indication: CROHN^S DISEASE
     Dosage: 1 INJECTION AT 31 WEEKS OF GESTATION - Nr of doses :1
     Route: 058
  4. PARACETAMOL [Concomitant]
  5. PHLOROGLUCINOL [Concomitant]
  6. INFLIXIMAB [Concomitant]
     Indication: CROHN^S DISEASE
     Dates: start: 2006

REACTIONS (4)
  - Postpartum haemorrhage [Recovered/Resolved]
  - Retained placenta or membranes [Recovered/Resolved]
  - Crohn^s disease [Recovered/Resolved]
  - Pregnancy [Recovered/Resolved]
